FAERS Safety Report 6161072-X (Version None)
Quarter: 2009Q2

REPORT INFORMATION
  Report Type: 
  Country: None (occurrence: None)
  Receive Date: 20090420
  Receipt Date: 20090408
  Transmission Date: 20091009
  Serious: Yes (Death)
  Sender: FDA-Public Use
  Company Number: IE-PFIZER INC-2009195037

PATIENT

DRUGS (9)
  1. XANAX [Suspect]
     Indication: ANXIETY
     Dosage: 1000 UG, 2X/DAY
     Dates: start: 20030826
  2. XANAX [Suspect]
     Indication: SLEEP DISORDER
  3. SEROQUEL [Suspect]
     Indication: MENTAL DISORDER
     Dosage: 300 MG, UNK
     Dates: start: 20070523
  4. ZYPREXA [Suspect]
     Indication: MENTAL DISORDER
     Dosage: 15 MG, UNK
     Dates: start: 20070208
  5. EPILIM CHRONO [Suspect]
     Indication: EPILEPSY
     Dosage: 800 MG, 2X/DAY
     Dates: start: 20040525
  6. TRAMADOL [Suspect]
     Indication: DEPENDENCE
     Dosage: 50 MG, 3X/DAY
     Dates: start: 20060619
  7. CLONAZEPAM [Suspect]
     Indication: MENTAL DISORDER
     Dosage: 1 MG, 3X/DAY
     Dates: start: 20071012
  8. ZOPITAN [Suspect]
     Indication: ANXIETY
     Dosage: 7.5 MG, 2X/DAY
     Dates: start: 20050802
  9. ZOPITAN [Suspect]
     Indication: SLEEP DISORDER

REACTIONS (1)
  - PULMONARY EMBOLISM [None]
